FAERS Safety Report 9834407 (Version 1)
Quarter: 2014Q1

REPORT INFORMATION
  Report Type: Spontaneous
  Country: US (occurrence: US)
  Receive Date: 20140122
  Receipt Date: 20140122
  Transmission Date: 20141002
  Serious: Yes (Hospitalization, Other)
  Sender: FDA-Public Use
  Company Number: US-ELI_LILLY_AND_COMPANY-US201401004595

PATIENT
  Sex: Female

DRUGS (4)
  1. HUMALOG 25% LISPRO, 75% NPL [Suspect]
     Indication: DIABETES MELLITUS
     Route: 065
  2. HUMALOG 25% LISPRO, 75% NPL [Suspect]
     Indication: DIABETES MELLITUS
     Route: 065
  3. HUMALOG 25% LISPRO, 75% NPL [Suspect]
     Dosage: 36 U, EACH MORNING
     Route: 065
  4. HUMALOG 25% LISPRO, 75% NPL [Suspect]
     Dosage: 20 U, EACH EVENING
     Route: 065

REACTIONS (4)
  - Cardiac failure congestive [Unknown]
  - Visual acuity reduced [Not Recovered/Not Resolved]
  - Blood glucose fluctuation [Unknown]
  - Incorrect dose administered [Unknown]
